FAERS Safety Report 6025775-X (Version None)
Quarter: 2008Q4

REPORT INFORMATION
  Report Type: 
  Country: None (occurrence: None)
  Receive Date: 20081224
  Receipt Date: 20081216
  Transmission Date: 20090506
  Serious: Yes (Other)
  Sender: FDA-Public Use
  Company Number: 20085831

PATIENT
  Sex: Female

DRUGS (1)
  1. LIORESAL [Suspect]
     Indication: MUSCLE SPASTICITY
     Dosage: 899.6 MCG, DAILY, INTRATHECAL
     Route: 037

REACTIONS (3)
  - CATHETER RELATED COMPLICATION [None]
  - HYPERTONIA [None]
  - IMPLANT SITE SCAR [None]
